FAERS Safety Report 5081604-2 (Version None)
Quarter: 2006Q3

REPORT INFORMATION
  Report Type: 
  Country: None (occurrence: None)
  Receive Date: 20060811
  Receipt Date: 20060731
  Transmission Date: 20061208
  Serious: Yes (Congenital Anomaly)
  Sender: FDA-Public Use
  Company Number: GBS050517465

PATIENT
  Sex: 0
  Weight: 1.9 kg

DRUGS (1)
  1. OLANZAPINE [Suspect]
     Dosage: TRANSPLACENTAL
     Route: 064
     Dates: start: 20040210, end: 20040323

REACTIONS (4)
  - DRUG EXPOSURE DURING PREGNANCY [None]
  - PREMATURE BABY [None]
  - SMALL FOR DATES BABY [None]
  - TRISOMY 21 [None]
